FAERS Safety Report 25878809 (Version 1)
Quarter: 2025Q4

REPORT INFORMATION
  Report Type: Other
  Country: CN (occurrence: CN)
  Receive Date: 20251003
  Receipt Date: 20251003
  Transmission Date: 20260117
  Serious: Yes (Hospitalization)
  Sender: INCYTE
  Company Number: CN-002147023-NVSC2025CN150909

PATIENT
  Age: 65 Year
  Weight: 60 kg

DRUGS (1)
  1. RUXOLITINIB [Suspect]
     Active Substance: RUXOLITINIB
     Indication: Primary myelofibrosis
     Dosage: 20 MG, BID

REACTIONS (1)
  - Liver injury [Recovering/Resolving]
